FAERS Safety Report 8049061-1 (Version None)
Quarter: 2012Q1

REPORT INFORMATION
  Report Type: 
  Country: None (occurrence: None)
  Receive Date: 20120117
  Receipt Date: 20120111
  Transmission Date: 20120608
  Serious: Yes (Hospitalization)
  Sender: FDA-Public Use
  Company Number: CA-BAYER-2012-003744

PATIENT
  Age: 77 Year
  Sex: Male
  Weight: 88.9 kg

DRUGS (12)
  1. TYLENOL-500 [Concomitant]
     Indication: OSTEOARTHRITIS
     Dosage: 1000 MG, QID AS NEEDED
     Dates: start: 20070101
  2. TYLENOL-500 [Concomitant]
     Indication: PAIN
  3. PROSCAR [Concomitant]
     Indication: BENIGN PROSTATIC HYPERPLASIA
     Dosage: DAILY DOSE 5 MG
     Route: 048
     Dates: start: 20110818, end: 20110801
  4. CELECOXIB;IBUPROFEN/NAPROXEN;PLACEBO [Suspect]
     Indication: OSTEOARTHRITIS
     Dosage: UNK
     Dates: start: 20110517, end: 20110908
  5. MONOCOR [Concomitant]
     Dosage: DAILY DOSE 2.5 MG
     Dates: end: 20110502
  6. ATORVASTATIN [Concomitant]
     Indication: DYSLIPIDAEMIA
     Dosage: DAILY DOSE 40 MG
     Route: 048
     Dates: start: 20100901
  7. ACETYLSALICYLIC ACID SRT [Suspect]
     Dosage: 80 MG, QD
     Route: 048
     Dates: start: 20110713
  8. MONOCOR [Concomitant]
     Dosage: 2.5 MG, QOD
     Dates: start: 20110503, end: 20110715
  9. NEXIUM [Concomitant]
     Indication: PROPHYLAXIS
     Dosage: DAILY DOSE 40 MG
     Route: 048
     Dates: start: 20110819, end: 20110908
  10. NITROGLYCERIN [Concomitant]
     Indication: CORONARY ARTERY DISEASE
     Dosage: 0.4 MG, PRN
     Route: 060
     Dates: start: 20110616
  11. ACETYLSALICYLIC ACID SRT [Suspect]
     Indication: CORONARY ARTERY DISEASE
     Dosage: UNK
     Route: 048
     Dates: end: 20100901
  12. DOXAZOSIN MESYLATE [Concomitant]
     Indication: BENIGN PROSTATIC HYPERPLASIA
     Dosage: 1 MG, HS
     Route: 048
     Dates: start: 20110818, end: 20110801

REACTIONS (6)
  - SYSTOLIC HYPERTENSION [None]
  - DUODENITIS [None]
  - STRESS [None]
  - EPISTAXIS [None]
  - GASTRITIS EROSIVE [None]
  - ABDOMINAL PAIN UPPER [None]
